FAERS Safety Report 16277305 (Version 1)
Quarter: 2019Q2

REPORT INFORMATION
  Report Type: Spontaneous
  Country: FR (occurrence: FR)
  Receive Date: 20190506
  Receipt Date: 20190506
  Transmission Date: 20190711
  Serious: Yes (Other)
  Sender: FDA-Public Use
  Company Number: FR-ASTRAZENECA-2019SE68085

PATIENT
  Sex: Male

DRUGS (1)
  1. CRESTOR [Suspect]
     Active Substance: ROSUVASTATIN CALCIUM
     Indication: CORONARY ARTERY STENOSIS
     Route: 048
     Dates: start: 2006

REACTIONS (5)
  - Muscle spasms [Unknown]
  - Abdominal pain [Unknown]
  - Movement disorder [Recovered/Resolved]
  - Myalgia [Unknown]
  - Tendonitis [Recovered/Resolved]
